FAERS Safety Report 18433043 (Version 1)
Quarter: 2020Q4

REPORT INFORMATION
  Report Type: Spontaneous
  Country: JP (occurrence: JP)
  Receive Date: 20201027
  Receipt Date: 20201027
  Transmission Date: 20210114
  Serious: Yes (Hospitalization)
  Sender: FDA-Public Use
  Company Number: JP-JNJFOC-20200243889

PATIENT
  Age: 51 Year
  Sex: Male
  Weight: 76.1 kg

DRUGS (5)
  1. TENELIA [Concomitant]
     Active Substance: TENELIGLIPTIN
     Route: 048
     Dates: start: 201809
  2. RYZODEG 70/30 [Concomitant]
     Active Substance: INSULIN ASPART\INSULIN DEGLUDEC
     Route: 058
  3. INSULIN                            /00646001/ [Concomitant]
     Active Substance: INSULIN NOS
  4. TRESIBA [Concomitant]
     Active Substance: INSULIN DEGLUDEC
  5. CANAGLIFLOZIN [Suspect]
     Active Substance: CANAGLIFLOZIN
     Indication: TYPE 2 DIABETES MELLITUS
     Route: 048
     Dates: start: 201809, end: 20191101

REACTIONS (1)
  - Diabetic gangrene [Unknown]
